FAERS Safety Report 23165367 (Version 2)
Quarter: 2025Q1

REPORT INFORMATION
  Report Type: Spontaneous
  Country: FR (occurrence: FR)
  Receive Date: 20231109
  Receipt Date: 20250319
  Transmission Date: 20250408
  Serious: Yes (Other)
  Sender: NOVARTIS
  Company Number: None

PATIENT
  Age: 73 Year
  Sex: Female

DRUGS (2)
  1. LUTATHERA [Suspect]
     Active Substance: LUTETIUM OXODOTREOTIDE LU-177
     Indication: Neuroendocrine tumour of the lung metastatic
     Dosage: 7400 MBQ, QD (370 MBQ/ML)
     Route: 042
     Dates: start: 20230822, end: 20230822
  2. ARGININE\LYSINE [Suspect]
     Active Substance: ARGININE\LYSINE
     Indication: Drug toxicity prophylaxis
     Dosage: 650 ML, QD
     Route: 042
     Dates: start: 20230822, end: 20230822

REACTIONS (2)
  - Oedema peripheral [Recovered/Resolved]
  - Infusion site extravasation [Recovered/Resolved]

NARRATIVE: CASE EVENT DATE: 20230822
